FAERS Safety Report 6782622-6 (Version None)
Quarter: 2010Q2

REPORT INFORMATION
  Report Type: 
  Country: None (occurrence: None)
  Receive Date: 20100621
  Receipt Date: 20100616
  Transmission Date: 20101027
  Serious: Yes (Hospitalization)
  Sender: FDA-Public Use
  Company Number: FR-BRISTOL-MYERS SQUIBB COMPANY-15152564

PATIENT
  Age: 86 Year
  Sex: Female

DRUGS (2)
  1. TAXOL [Suspect]
     Indication: BRONCHIAL CARCINOMA
     Dosage: ON 26MAY2010 RECEIVED THERAPY AGAIN
     Route: 042
     Dates: start: 20100421
  2. CARBOPLATIN [Suspect]
     Indication: BRONCHIAL CARCINOMA
     Dosage: ON 26MAY2010 RECEIVED THERAPY AGAIN
     Route: 042
     Dates: start: 20100421

REACTIONS (2)
  - ACUTE RESPIRATORY DISTRESS SYNDROME [None]
  - RENAL FAILURE [None]
